FAERS Safety Report 5268499-9 (Version None)
Quarter: 2007Q1

REPORT INFORMATION
  Report Type: 
  Country: None (occurrence: None)
  Receive Date: 20070319
  Receipt Date: 20070309
  Transmission Date: 20070707
  Serious: Yes (Death)
  Sender: FDA-Public Use
  Company Number: NO-NOMAADVRE-RELISS-2006-3369

PATIENT
  Sex: Male

DRUGS (4)
  1. VIAGRA [Suspect]
     Indication: ERECTILE DYSFUNCTION
     Route: 048
  2. LITHIONIT [Concomitant]
     Indication: BIPOLAR DISORDER
     Dosage: TEXT:ONE DOSE
     Route: 048
  3. CISORDINOL [Concomitant]
     Indication: SCHIZOPHRENIA
     Route: 048
  4. AKINETON [Concomitant]
     Indication: EXTRAPYRAMIDAL DISORDER
     Route: 048

REACTIONS (1)
  - SUDDEN DEATH [None]
